FAERS Safety Report 6983510 (Version 7)
Quarter: 2015Q2

REPORT INFORMATION
  Report Type: Spontaneous
  Country: US (occurrence: US)
  Receive Date: 20090430
  Receipt Date: 20150604
  Transmission Date: 20150821
  Serious: Yes (Hospitalization, Other)
  Sender: FDA-Public Use
  Company Number: US-ASTRAZENECA-2009UW03397

PATIENT
  Age: 82 Year
  Sex: Female
  Weight: 61.2 kg

DRUGS (23)
  1. PREDNISONE. [Concomitant]
     Active Substance: PREDNISONE
     Indication: CHRONIC OBSTRUCTIVE PULMONARY DISEASE
     Route: 048
     Dates: start: 201312
  2. LUMIGAN [Concomitant]
     Active Substance: BIMATOPROST
     Route: 047
  3. TRUSOPT [Concomitant]
     Active Substance: DORZOLAMIDE HYDROCHLORIDE
  4. VITAMIN C [Concomitant]
     Active Substance: ASCORBIC ACID
     Indication: CALCIUM DEFICIENCY
     Route: 048
     Dates: start: 201309
  5. NEXIUM [Suspect]
     Active Substance: ESOMEPRAZOLE MAGNESIUM
     Indication: GASTROOESOPHAGEAL REFLUX DISEASE
     Route: 048
     Dates: end: 20140501
  6. TUMS [Concomitant]
     Active Substance: CALCIUM CARBONATE
  7. HEMAX [Concomitant]
  8. FUROSEMIDE. [Concomitant]
     Active Substance: FUROSEMIDE
     Indication: DIURETIC THERAPY
     Route: 048
     Dates: start: 20140502
  9. NEXIUM [Suspect]
     Active Substance: ESOMEPRAZOLE MAGNESIUM
     Indication: GASTROOESOPHAGEAL REFLUX DISEASE
     Route: 048
     Dates: start: 1999, end: 200901
  10. NEXIUM [Suspect]
     Active Substance: ESOMEPRAZOLE MAGNESIUM
     Indication: GASTROOESOPHAGEAL REFLUX DISEASE
     Route: 048
     Dates: start: 2014, end: 201412
  11. MYLANTA [Concomitant]
     Active Substance: ALUMINUM HYDROXIDE\MAGNESIUM HYDROXIDE\SIMETHICONE
  12. VITAMIN D [Concomitant]
     Active Substance: CHOLECALCIFEROL
     Indication: ARTHRITIS
     Route: 048
     Dates: start: 201309
  13. MORPHINE (NON AZ PRODUCT) [Suspect]
     Active Substance: MORPHINE
     Route: 065
  14. BABY ASPIRIN [Concomitant]
     Active Substance: ASPIRIN
     Indication: CARDIAC DISORDER
     Route: 048
     Dates: start: 201401
  15. PREVACID [Concomitant]
     Active Substance: LANSOPRAZOLE
  16. OXYCODONE HCL [Concomitant]
     Active Substance: OXYCODONE HYDROCHLORIDE
  17. CLOPIDOGREL [Concomitant]
     Active Substance: CLOPIDOGREL BISULFATE
     Indication: CARDIAC DISORDER
     Route: 048
     Dates: start: 201401
  18. CARTIA XP [Concomitant]
     Indication: CARDIAC DISORDER
     Route: 048
     Dates: start: 201401
  19. FIORICET [Concomitant]
     Active Substance: ACETAMINOPHEN\BUTALBITAL\CAFFEINE
     Indication: FLUID RETENTION
     Route: 048
     Dates: start: 201312
  20. SYMBICORT [Suspect]
     Active Substance: BUDESONIDE\FORMOTEROL FUMARATE DIHYDRATE
     Indication: CHRONIC OBSTRUCTIVE PULMONARY DISEASE
     Dosage: 160/4.5 MCG 2 PUFFS BID
     Route: 055
     Dates: start: 2013, end: 20140805
  21. LEVOBUNOLOL HCL [Concomitant]
  22. IRON [Concomitant]
     Active Substance: IRON
     Indication: BLOOD DISORDER
     Route: 048
  23. OCUVITE (BAUSCH AND LOMB) [Concomitant]
     Indication: EYE DISORDER

REACTIONS (39)
  - Fall [Unknown]
  - Blindness [Not Recovered/Not Resolved]
  - Aortic arteriosclerosis [Unknown]
  - Drug hypersensitivity [Unknown]
  - Oesophageal obstruction [Unknown]
  - Hypophagia [Unknown]
  - Anaemia [Unknown]
  - Nausea [Unknown]
  - Arthralgia [Unknown]
  - Rib fracture [Unknown]
  - Rib fracture [Unknown]
  - Myalgia [Unknown]
  - Drug dose omission [Unknown]
  - Drug ineffective [Unknown]
  - Eye operation complication [Unknown]
  - Bone pain [Not Recovered/Not Resolved]
  - Visual impairment [Not Recovered/Not Resolved]
  - Body height decreased [Unknown]
  - Joint swelling [Unknown]
  - Intentional product misuse [Unknown]
  - Hiatus hernia [Unknown]
  - Back pain [Unknown]
  - Asthenia [Unknown]
  - Gastrointestinal arteriovenous malformation [Unknown]
  - Intraocular pressure increased [Unknown]
  - Abdominal pain upper [Unknown]
  - Presbyoesophagus [Unknown]
  - Chronic gastrointestinal bleeding [Unknown]
  - Oesophageal varices haemorrhage [Unknown]
  - Dyspepsia [Unknown]
  - Gastrooesophageal reflux disease [Unknown]
  - Chronic gastritis [Unknown]
  - Oedema [Unknown]
  - Malaise [Unknown]
  - Cataract [Recovered/Resolved]
  - Spinal fracture [Unknown]
  - Myocardial infarction [Recovered/Resolved]
  - Dysphagia [Unknown]
  - Joint stiffness [Unknown]

NARRATIVE: CASE EVENT DATE: 2004
